FAERS Safety Report 8392175 (Version 5)
Quarter: 2013Q3

REPORT INFORMATION
  Report Type: Report from Study
  Country: US (occurrence: US)
  Receive Date: 20120206
  Receipt Date: 20130806
  Transmission Date: 20140515
  Serious: Yes (Death, Life-Threatening, Hospitalization, Other)
  Sender: FDA-Public Use
  Company Number: US-SHIRE-ALL1-2012-00496

PATIENT
  Age: 10 Year
  Sex: Male
  Weight: 25 kg

DRUGS (7)
  1. IDURSULFASE [Suspect]
     Indication: MUCOPOLYSACCHARIDOSIS II
     Dosage: 0.5 MG/KG, 1X/WEEK
     Route: 041
     Dates: start: 20061108, end: 20120119
  2. LORAZEPAM [Concomitant]
     Indication: ANXIETY
     Dosage: 0.5 MG, AS REQ^D
     Route: 048
     Dates: start: 20100314
  3. KEPPRA [Concomitant]
     Indication: NERVOUS SYSTEM DISORDER
     Dosage: 200 MG, 2X/DAY:BID
     Route: 048
     Dates: start: 20081204
  4. KEPPRA [Concomitant]
     Indication: CONVULSION
     Dosage: UNK, AS REQ^D
     Route: 042
  5. DIASTAT                            /00017001/ [Concomitant]
     Indication: CONVULSION
     Dosage: 5 MG, AS REQ^D
     Route: 054
     Dates: start: 20080511
  6. DIPHENHYDRAMINE [Concomitant]
     Indication: PREMEDICATION
     Dosage: 25 MG, 1X/WEEK
     Route: 042
     Dates: start: 20061108
  7. ROBINUL [Concomitant]
     Indication: SALIVARY HYPERSECRETION
     Dosage: UNK, UNKNOWN
     Route: 065

REACTIONS (3)
  - Respiratory failure [Fatal]
  - Bronchopneumonia [Not Recovered/Not Resolved]
  - Urine output decreased [Not Recovered/Not Resolved]
